FAERS Safety Report 13041465 (Version 1)
Quarter: 2016Q4

REPORT INFORMATION
  Report Type: Spontaneous
  Country: US (occurrence: US)
  Receive Date: 20161219
  Receipt Date: 20161219
  Transmission Date: 20170207
  Serious: No
  Sender: FDA-Public Use
  Company Number: US-ROCHE-1262692

PATIENT

DRUGS (2)
  1. ZELBORAF [Suspect]
     Active Substance: VEMURAFENIB
     Indication: PRODUCT USED FOR UNKNOWN INDICATION
     Route: 065
     Dates: start: 201308
  2. ZELBORAF [Suspect]
     Active Substance: VEMURAFENIB
     Dosage: DOSE REDUCED: 2 BY 2 TABLETS
     Route: 065
     Dates: start: 20130812

REACTIONS (5)
  - Skin mass [Unknown]
  - Arthralgia [Unknown]
  - Rash [Unknown]
  - Myalgia [Unknown]
  - Pain of skin [Unknown]
